FAERS Safety Report 10855538 (Version 1)
Quarter: 2015Q1

REPORT INFORMATION
  Report Type: Spontaneous
  Country: US (occurrence: None)
  Receive Date: 20150218
  Receipt Date: 20150218
  Transmission Date: 20150721
  Serious: Yes (Life-Threatening, Hospitalization, Other)
  Sender: FDA-Public Use
  Company Number: None

PATIENT
  Age: 80 Year
  Sex: Male
  Weight: 54.43 kg

DRUGS (5)
  1. LIPITOR [Suspect]
     Active Substance: ATORVASTATIN CALCIUM
     Indication: CARDIAC DISORDER
     Dosage: MORE THAN 10 YEARS
     Route: 048
  2. WARFARIN [Concomitant]
     Active Substance: WARFARIN
  3. PROSTATE NED^S [Concomitant]
  4. VITAMINS [Concomitant]
     Active Substance: VITAMINS
  5. HEART MEDS [Concomitant]

REACTIONS (2)
  - Muscular weakness [None]
  - Paralysis [None]

NARRATIVE: CASE EVENT DATE: 20150115
